FAERS Safety Report 6003150 (Version 2)
Quarter: 2015Q3

REPORT INFORMATION
  Report Type: Spontaneous
  Country: US (occurrence: None)
  Receive Date: 20060118
  Receipt Date: 20150901
  Transmission Date: 20151125
  Serious: Yes (Hospitalization, Other)
  Sender: FDA-Public Use
  Company Number: 2005000985

PATIENT
  Age: 67 Year
  Sex: Male
  Weight: 105 kg

DRUGS (8)
  1. DOXYCYCLINE. [Concomitant]
     Active Substance: DOXYCYCLINE
  2. TARCEVA [Suspect]
     Active Substance: ERLOTINIB HYDROCHLORIDE
     Indication: HEPATIC CANCER
     Dosage: 150 MG (QD), ORAL
     Route: 048
  3. NORVASC [Concomitant]
     Active Substance: AMLODIPINE BESYLATE
  4. INSULIN NOS [Concomitant]
     Active Substance: INSULIN NOS
  5. PLAVIX [Concomitant]
     Active Substance: CLOPIDOGREL BISULFATE
  6. METOPROLOL TARTRATE. [Concomitant]
     Active Substance: METOPROLOL TARTRATE
  7. ASPIRIN. [Concomitant]
     Active Substance: ASPIRIN
  8. AVANDIA [Concomitant]
     Active Substance: ROSIGLITAZONE MALEATE

REACTIONS (12)
  - Rash [None]
  - Swelling [None]
  - Swelling face [None]
  - Neoplasm progression [None]
  - Local swelling [None]
  - Anaemia [None]
  - Swollen tongue [None]
  - Off label use [None]
  - Metastases to small intestine [None]
  - Diarrhoea [None]
  - Blood iron decreased [None]
  - Eye swelling [None]
